FAERS Safety Report 4300254-6 (Version None)
Quarter: 2004Q1

REPORT INFORMATION
  Report Type: 
  Country: None (occurrence: None)
  Receive Date: 20040218
  Receipt Date: 20040203
  Transmission Date: 20041129
  Serious: Yes (Hospitalization)
  Sender: FDA-Public Use
  Company Number: 2004-06667

PATIENT
  Age: 37 Year
  Sex: Male

DRUGS (3)
  1. VIREAD [Suspect]
     Indication: HIV INFECTION
     Dates: start: 20031115, end: 20031210
  2. VIRAMUNE [Suspect]
     Indication: HIV INFECTION
     Dates: start: 20031115, end: 20031210
  3. ZIAGEN [Concomitant]

REACTIONS (8)
  - ABDOMINAL PAIN [None]
  - CHOLECYSTITIS [None]
  - CHOLELITHIASIS [None]
  - LIVER DISORDER [None]
  - OEDEMA [None]
  - PYREXIA [None]
  - TOXIC EPIDERMAL NECROLYSIS [None]
  - VOMITING [None]
